FAERS Safety Report 5020534-9 (Version None)
Quarter: 2006Q2

REPORT INFORMATION
  Report Type: 
  Country: None (occurrence: None)
  Receive Date: 20060607
  Receipt Date: 20060607
  Transmission Date: 20061013
  Serious: Yes (Life-Threatening, Hospitalization, Disabling)
  Sender: FDA-Public Use
  Company Number: None

PATIENT
  Age: 60 Year
  Sex: Male
  Weight: 90 kg

DRUGS (2)
  1. WARFARIN SODIUM [Suspect]
     Indication: ATRIAL FIBRILLATION
     Dosage: 5MG  QD  PO
     Route: 048
     Dates: start: 20010927, end: 20060406
  2. ASPIRIN [Suspect]
     Indication: ISCHAEMIC HEART DISEASE PROPHYLAXIS
     Dosage: 81MG  QD PO
     Route: 048
     Dates: start: 19980317, end: 20060406

REACTIONS (2)
  - CATHETER RELATED COMPLICATION [None]
  - HAEMATURIA [None]
